FAERS Safety Report 18993095 (Version 1)
Quarter: 2021Q1

REPORT INFORMATION
  Report Type: Spontaneous
  Country: FR (occurrence: FR)
  Receive Date: 20210310
  Receipt Date: 20210310
  Transmission Date: 20210420
  Serious: Yes (Hospitalization, Other)
  Sender: FDA-Public Use
  Company Number: FR-GLAXOSMITHKLINE-FR2021056867

PATIENT
  Age: 63 Year
  Sex: Female

DRUGS (1)
  1. ZEJULA [Suspect]
     Active Substance: NIRAPARIB
     Indication: OVARIAN CANCER
     Dosage: 2 DF, QD
     Route: 048
     Dates: start: 20210108, end: 20210128

REACTIONS (2)
  - Thrombocytopenia [Unknown]
  - Purpura [Recovered/Resolved]

NARRATIVE: CASE EVENT DATE: 20210129
